FAERS Safety Report 21850872 (Version 10)
Quarter: 2023Q1

REPORT INFORMATION
  Report Type: Report from Study
  Country: GB (occurrence: GB)
  Receive Date: 20230111
  Receipt Date: 20230328
  Transmission Date: 20230418
  Serious: Yes (Hospitalization, Other)
  Sender: FDA-Public Use
  Company Number: GB-SA-SAC20230109001601

PATIENT
  Age: 26 Year
  Sex: Female
  Weight: 37.95 kg

DRUGS (20)
  1. ISATUXIMAB [Suspect]
     Active Substance: ISATUXIMAB
     Indication: Warm autoimmune haemolytic anaemia
     Dosage: 560 MG
     Route: 058
     Dates: start: 20230104, end: 20230104
  2. ISATUXIMAB [Suspect]
     Active Substance: ISATUXIMAB
     Dosage: 560 MG
     Route: 058
     Dates: start: 20230215, end: 20230215
  3. ACETAMINOPHEN [Concomitant]
     Active Substance: ACETAMINOPHEN
     Dosage: 500 MG
     Dates: start: 20230104
  4. DIPHENHYDRAMINE [Concomitant]
     Active Substance: DIPHENHYDRAMINE
     Dosage: UNK
     Dates: start: 20230104
  5. DIPHENHYDRAMINE [Concomitant]
     Active Substance: DIPHENHYDRAMINE
     Dosage: 4 MG
     Route: 048
     Dates: start: 20230201
  6. CHLORPHENIRAMINE MALEATE [Concomitant]
     Active Substance: CHLORPHENIRAMINE MALEATE
     Indication: Prophylaxis
     Dosage: UNK
     Route: 048
     Dates: start: 20230104, end: 20230104
  7. FOLIC ACID [Concomitant]
     Active Substance: FOLIC ACID
     Indication: Prophylaxis
     Dosage: UNK
     Route: 048
     Dates: start: 2019
  8. HUMAN RED BLOOD CELL [Concomitant]
     Active Substance: HUMAN RED BLOOD CELL
     Dosage: 2 UNIT
     Route: 042
     Dates: start: 20230215, end: 20230215
  9. HUMAN RED BLOOD CELL [Concomitant]
     Active Substance: HUMAN RED BLOOD CELL
     Dosage: 3 UNIT
     Route: 042
     Dates: start: 20230226, end: 20230226
  10. CHOLECALCIFEROL [Concomitant]
     Active Substance: CHOLECALCIFEROL
     Indication: Prophylaxis
     Dosage: UNK
     Route: 048
     Dates: start: 2016
  11. FILGRASTIM [Concomitant]
     Active Substance: FILGRASTIM
  12. FAMOTIDINE [Concomitant]
     Active Substance: FAMOTIDINE
     Dosage: 40 MG
     Route: 048
     Dates: start: 20230201
  13. ENOXAPARIN [Concomitant]
     Active Substance: ENOXAPARIN
     Indication: Prophylaxis
     Dosage: 20 MG
     Route: 058
     Dates: start: 20230226
  14. METRONIDAZOLE [Concomitant]
     Active Substance: METRONIDAZOLE
     Dosage: UNK
     Dates: start: 20230223
  15. ACETAMINOPHEN [Concomitant]
     Active Substance: ACETAMINOPHEN
     Dosage: 1 G
     Route: 048
     Dates: start: 20230201
  16. MONTELUKAST [Concomitant]
     Active Substance: MONTELUKAST SODIUM
     Dosage: 10 MG
     Route: 048
     Dates: start: 20230201
  17. ETHINYL ESTRADIOL\LEVONORGESTREL [Concomitant]
     Active Substance: ETHINYL ESTRADIOL\LEVONORGESTREL
     Indication: Prophylaxis
     Dosage: UNK
     Route: 048
  18. ACYCLOVIR [Concomitant]
     Active Substance: ACYCLOVIR
     Indication: Prophylaxis
     Dosage: UNK
     Route: 048
     Dates: start: 20230228
  19. ENSURE COMPACT [Concomitant]
     Indication: Prophylaxis
     Dosage: 1(BOTTLE )
     Route: 048
     Dates: start: 20230227
  20. MOMETASONE FUROATE [Concomitant]
     Active Substance: MOMETASONE FUROATE
     Indication: Prophylaxis
     Dosage: 1 UNKNOWN
     Route: 061
     Dates: start: 20230227

REACTIONS (3)
  - Infusion related reaction [Recovered/Resolved]
  - Sepsis [Recovered/Resolved]
  - Alanine aminotransferase increased [Recovering/Resolving]

NARRATIVE: CASE EVENT DATE: 20230104
